FAERS Safety Report 6898108-4 (Version None)
Quarter: 2010Q3

REPORT INFORMATION
  Report Type: 
  Country: None (occurrence: None)
  Receive Date: 20100802
  Receipt Date: 20070910
  Transmission Date: 20110219
  Serious: No
  Sender: FDA-Public Use
  Company Number: US-PFIZER INC-2007076181

PATIENT
  Sex: Female
  Weight: 59 kg

DRUGS (6)
  1. LYRICA [Suspect]
     Indication: LIMB OPERATION
     Dates: start: 20070201
  2. DILANTIN [Concomitant]
  3. CELEBREX [Concomitant]
  4. OXYCODONE [Concomitant]
  5. CLARINEX [Concomitant]
  6. LEVOXYL [Concomitant]

REACTIONS (3)
  - EYE DISORDER [None]
  - FEELING ABNORMAL [None]
  - VISION BLURRED [None]
